FAERS Safety Report 19149406 (Version 1)
Quarter: 2021Q2

REPORT INFORMATION
  Report Type: Spontaneous
  Country: CO (occurrence: CO)
  Receive Date: 20210416
  Receipt Date: 20210416
  Transmission Date: 20210717
  Serious: Yes (Other)
  Sender: FDA-Public Use
  Company Number: NVSC2020CO243468

PATIENT
  Sex: Male

DRUGS (9)
  1. REVOLADE [Suspect]
     Active Substance: ELTROMBOPAG OLAMINE
     Dosage: 150 MG, QD
     Route: 048
  2. INSULIN ASPART [Concomitant]
     Active Substance: INSULIN ASPART
     Indication: DIABETES MELLITUS
     Dosage: UNK UNK, TID (14 UNITS)
     Route: 058
  3. REVOLADE [Suspect]
     Active Substance: ELTROMBOPAG OLAMINE
     Dosage: 75 MG (FOR ONE MONTH)
     Route: 048
  4. REVOLADE [Suspect]
     Active Substance: ELTROMBOPAG OLAMINE
     Dosage: 150 MG, QD
     Route: 048
     Dates: start: 20200704
  5. INSULIN GLARGINE [Concomitant]
     Active Substance: INSULIN GLARGINE
     Indication: DIABETES MELLITUS
     Dosage: UNK (36 UNITS, AT NIGHT)
     Route: 058
  6. REVOLADE [Suspect]
     Active Substance: ELTROMBOPAG OLAMINE
     Dosage: 50 MG, QD
     Route: 048
     Dates: start: 202103
  7. REVOLADE [Suspect]
     Active Substance: ELTROMBOPAG OLAMINE
     Dosage: 50 MG, QD
     Route: 048
     Dates: start: 20200704, end: 202103
  8. REVOLADE [Suspect]
     Active Substance: ELTROMBOPAG OLAMINE
     Indication: APLASTIC ANAEMIA
     Dosage: 150 MG, QD
     Route: 048
     Dates: start: 20200603
  9. LOSARTAN. [Suspect]
     Active Substance: LOSARTAN
     Indication: HYPERTENSION
     Dosage: 50 MG, QD
     Route: 048

REACTIONS (18)
  - Nausea [Recovered/Resolved]
  - Cough [Not Recovered/Not Resolved]
  - High density lipoprotein increased [Unknown]
  - Ageusia [Unknown]
  - Insomnia [Recovered/Resolved]
  - Headache [Unknown]
  - Haemoglobin decreased [Unknown]
  - Platelet count decreased [Recovering/Resolving]
  - COVID-19 [Unknown]
  - Serum ferritin increased [Unknown]
  - Dyspepsia [Unknown]
  - Pyrexia [Unknown]
  - Hyperhidrosis [Unknown]
  - Anosmia [Unknown]
  - Poor quality sleep [Unknown]
  - Diarrhoea [Unknown]
  - Malaise [Unknown]
  - Asthenia [Not Recovered/Not Resolved]
